FAERS Safety Report 21169249 (Version 3)
Quarter: 2022Q3

REPORT INFORMATION
  Report Type: Spontaneous
  Country: US (occurrence: US)
  Receive Date: 20220804
  Receipt Date: 20220818
  Transmission Date: 20221026
  Serious: Yes (Hospitalization, Other)
  Sender: FDA-Public Use
  Company Number: US-JNJFOC-20220760488

PATIENT
  Age: 63 Year
  Sex: Female

DRUGS (2)
  1. TRACLEER [Suspect]
     Active Substance: BOSENTAN
     Indication: Pulmonary arterial hypertension
     Route: 048
     Dates: start: 202205
  2. NIFEDIPINE [Concomitant]
     Active Substance: NIFEDIPINE

REACTIONS (2)
  - Ventricular tachycardia [Unknown]
  - Scleroderma [Unknown]

NARRATIVE: CASE EVENT DATE: 20220704
